FAERS Safety Report 6504058-5 (Version None)
Quarter: 2009Q4

REPORT INFORMATION
  Report Type: 
  Country: None (occurrence: None)
  Receive Date: 20091217
  Receipt Date: 20091208
  Transmission Date: 20100525
  Serious: Yes (Other)
  Sender: FDA-Public Use
  Company Number: US-JNJFOC-20091203442

PATIENT
  Age: 72 Year
  Sex: Female
  Weight: 71.67 kg

DRUGS (7)
  1. EXTRA STRENGTH TYLENOL [Suspect]
     Indication: PAIN
     Route: 048
  2. EXTRA STRENGTH TYLENOL [Suspect]
     Indication: INSOMNIA
     Route: 048
  3. VYTORIN [Concomitant]
     Indication: BLOOD CHOLESTEROL INCREASED
     Dosage: 10/20 MG ONCE DAILY
  4. AZOR [Concomitant]
     Indication: HYPERTENSION
     Dosage: 10/20 MG ONCE DAILY
  5. MULTI-VITAMINS [Concomitant]
     Indication: NUTRITIONAL SUPPORT
  6. CALTRATE [Concomitant]
     Indication: NUTRITIONAL SUPPORT
  7. FISH OIL [Concomitant]
     Indication: NUTRITIONAL SUPPORT

REACTIONS (3)
  - HALLUCINATION [None]
  - INSOMNIA [None]
  - NIGHTMARE [None]
